FAERS Safety Report 7082035-6 (Version None)
Quarter: 2010Q4

REPORT INFORMATION
  Report Type: 
  Country: None (occurrence: None)
  Receive Date: 20101103
  Receipt Date: 20101028
  Transmission Date: 20110411
  Serious: No
  Sender: FDA-Public Use
  Company Number: US-PFIZER INC-2010137697

PATIENT
  Sex: Female
  Weight: 81.633 kg

DRUGS (2)
  1. AMLODIPINE BESILATE [Suspect]
  2. LIPITOR [Suspect]
     Indication: BLOOD CHOLESTEROL INCREASED
     Dosage: 40 MG, DAILY
     Route: 048
     Dates: start: 20050101

REACTIONS (3)
  - CIRCUMSTANCE OR INFORMATION CAPABLE OF LEADING TO MEDICATION ERROR [None]
  - NAUSEA [None]
  - PRODUCT QUALITY ISSUE [None]
